FAERS Safety Report 14531948 (Version 1)
Quarter: 2018Q1

REPORT INFORMATION
  Report Type: Spontaneous
  Country: DE (occurrence: DE)
  Receive Date: 20180214
  Receipt Date: 20180214
  Transmission Date: 20180509
  Serious: Yes (Other)
  Sender: FDA-Public Use
  Company Number: DE-009507513-1802DEU005550

PATIENT
  Age: 54 Year
  Sex: Female
  Weight: 77 kg

DRUGS (3)
  1. METFORMIN [Concomitant]
     Active Substance: METFORMIN HYDROCHLORIDE
     Indication: TYPE 2 DIABETES MELLITUS
  2. TIOBLIS 10 MG/10 MG [Suspect]
     Active Substance: ATORVASTATIN\EZETIMIBE
     Indication: HYPERCHOLESTEROLAEMIA
     Dosage: DAILY DOSE: 1 DF DOSAGE FORM  EVERY DAY
     Route: 048
     Dates: start: 201609
  3. DEKRISTOL [Concomitant]
     Active Substance: CHOLECALCIFEROL
     Indication: TYPE 2 DIABETES MELLITUS
     Dosage: DAILY DOSE: 20 IU INTERNATIONAL UNIT(S) EVERY WEEK

REACTIONS (1)
  - Oral lichen planus [Not Recovered/Not Resolved]

NARRATIVE: CASE EVENT DATE: 201711
